FAERS Safety Report 23868400 (Version 1)
Quarter: 2024Q2

REPORT INFORMATION
  Report Type: Spontaneous
  Country: US (occurrence: US)
  Receive Date: 20240517
  Receipt Date: 20240517
  Transmission Date: 20240715
  Serious: Yes (Hospitalization)
  Sender: FDA-Public Use
  Company Number: US-PARI RESPIRATORY EQUIPMENT, INC.-2024PAR00038

PATIENT
  Sex: Male
  Weight: 54.875 kg

DRUGS (1)
  1. KITABIS PAK [Suspect]
     Active Substance: TOBRAMYCIN
     Indication: Pneumonia pseudomonal
     Dosage: 300 MG, INHALED VIA NEBULIZER, 2X/DAY FOR 28 DAYS ON AND 28 DAYS OFF

REACTIONS (2)
  - Hospitalisation [Unknown]
  - Off label use [Unknown]
